FAERS Safety Report 15504453 (Version 2)
Quarter: 2019Q1

REPORT INFORMATION
  Report Type: Spontaneous
  Country: NL (occurrence: NL)
  Receive Date: 20181016
  Receipt Date: 20190208
  Transmission Date: 20190417
  Serious: Yes (Hospitalization)
  Sender: FDA-Public Use
  Company Number: NL-ACCORD-073248

PATIENT
  Age: 77 Year
  Sex: Female

DRUGS (7)
  1. PREDNISONE. [Concomitant]
     Active Substance: PREDNISONE
  2. PAROXETINE. [Concomitant]
     Active Substance: PAROXETINE
  3. CAPECITABINE. [Suspect]
     Active Substance: CAPECITABINE
     Indication: COLON CANCER
  4. DICLOFENAC [Concomitant]
     Active Substance: DICLOFENAC
  5. ASCAL [Concomitant]
  6. FRAXIPARINE [Concomitant]
     Active Substance: NADROPARIN CALCIUM
  7. TERBINAFINE/TERBINAFINE HYDROCHLORIDE [Concomitant]

REACTIONS (1)
  - Diabetic ketoacidosis [Recovered/Resolved]

NARRATIVE: CASE EVENT DATE: 20171221
